FAERS Safety Report 5931277-9 (Version None)
Quarter: 2008Q4

REPORT INFORMATION
  Report Type: 
  Country: None (occurrence: None)
  Receive Date: 20081027
  Receipt Date: 20081016
  Transmission Date: 20090506
  Serious: Yes (Hospitalization)
  Sender: FDA-Public Use
  Company Number: JP-AVENTIS-200814306GDDC

PATIENT
  Age: 68 Year
  Sex: Female

DRUGS (13)
  1. CRAVIT [Suspect]
     Indication: LYMPH NODE TUBERCULOSIS
     Route: 048
     Dates: start: 20071001, end: 20080425
  2. ISONIAZID [Suspect]
     Indication: LYMPH NODE TUBERCULOSIS
     Route: 048
     Dates: start: 20070901, end: 20080214
  3. ISONIAZID [Suspect]
     Dates: start: 20070907, end: 20070901
  4. RIFADIN [Suspect]
     Dates: start: 20070907, end: 20071005
  5. PYRAZINAMIDE [Concomitant]
     Indication: LYMPH NODE TUBERCULOSIS
     Route: 048
     Dates: start: 20070901, end: 20080425
  6. ETHAMBUTOL HCL [Concomitant]
     Indication: LYMPH NODE TUBERCULOSIS
     Dosage: DOSE QUANTITY: 2
     Route: 048
     Dates: start: 20070901, end: 20080509
  7. ASPIRIN [Concomitant]
     Route: 048
  8. OLMETEC [Concomitant]
     Dosage: DOSE QUANTITY: 2
     Route: 048
  9. AMLODIN [Concomitant]
     Dosage: DOSE QUANTITY: 2
     Route: 048
  10. CELTECT [Concomitant]
     Dosage: DOSE QUANTITY: 1
     Route: 048
  11. PROTECADIN [Concomitant]
     Dosage: DOSE QUANTITY: 1
     Route: 048
  12. POLIAMIN [Concomitant]
     Dosage: DOSE QUANTITY: 3
     Route: 048
  13. PYDOXAL [Concomitant]
     Dosage: DOSE QUANTITY: 3
     Route: 048

REACTIONS (2)
  - NEUROPATHY PERIPHERAL [None]
  - PANCYTOPENIA [None]
